FAERS Safety Report 26190405 (Version 1)
Quarter: 2025Q4

REPORT INFORMATION
  Report Type: Spontaneous
  Country: CN (occurrence: CN)
  Receive Date: 20251223
  Receipt Date: 20251223
  Transmission Date: 20260118
  Serious: Yes (Other)
  Sender: DAIICHI
  Company Number: CN-DSJP-DS-2025-184600-CN

PATIENT
  Sex: Female

DRUGS (2)
  1. ENHERTU [Suspect]
     Active Substance: FAM-TRASTUZUMAB DERUXTECAN-NXKI
     Indication: Triple negative breast cancer
     Dosage: UNK
     Route: 065
     Dates: start: 202409
  2. ENHERTU [Suspect]
     Active Substance: FAM-TRASTUZUMAB DERUXTECAN-NXKI
     Indication: Metastases to liver
     Dosage: UNK
     Route: 065
     Dates: start: 202410

REACTIONS (2)
  - Metastases to spine [Unknown]
  - Drug resistance [Unknown]

NARRATIVE: CASE EVENT DATE: 20251001
